FAERS Safety Report 21984241 (Version 1)
Quarter: 2023Q1

REPORT INFORMATION
  Report Type: Spontaneous
  Country: CA (occurrence: CA)
  Receive Date: 20230213
  Receipt Date: 20230213
  Transmission Date: 20230418
  Serious: Yes (Other)
  Sender: FDA-Public Use
  Company Number: CA-SA-SAC20230210000779

PATIENT
  Age: 64 Year
  Sex: Female

DRUGS (2)
  1. AUBAGIO [Suspect]
     Active Substance: TERIFLUNOMIDE
     Indication: Product used for unknown indication
     Dosage: UNK
     Route: 065
  2. COPAXONE [Suspect]
     Active Substance: GLATIRAMER ACETATE
     Indication: Relapsing-remitting multiple sclerosis
     Dosage: 20 MG, QD
     Route: 058

REACTIONS (19)
  - Generalised tonic-clonic seizure [Unknown]
  - Hemiparesis [Unknown]
  - Optic neuropathy [Unknown]
  - Secondary progressive multiple sclerosis [Unknown]
  - Multiple sclerosis pseudo relapse [Unknown]
  - Cognitive disorder [Unknown]
  - Fatigue [Unknown]
  - Fine motor skill dysfunction [Unknown]
  - Injection site pain [Unknown]
  - Irritability [Unknown]
  - Memory impairment [Unknown]
  - Stress [Unknown]
  - Visual impairment [Unknown]
  - Anger [Unknown]
  - Urinary tract infection [Unknown]
  - Hypoaesthesia [Unknown]
  - Paraesthesia [Unknown]
  - Alopecia [Unknown]
  - Off label use [Unknown]
